FAERS Safety Report 6728384-X (Version None)
Quarter: 2010Q2

REPORT INFORMATION
  Report Type: 
  Country: None (occurrence: None)
  Receive Date: 20100512
  Receipt Date: 20100506
  Transmission Date: 20101027
  Serious: Yes (Death, Hospitalization)
  Sender: FDA-Public Use
  Company Number: 7004018

PATIENT
  Sex: Male

DRUGS (1)
  1. NOVANTRONE [Suspect]

REACTIONS (1)
  - DEATH [None]
